FAERS Safety Report 6226250-X (Version None)
Quarter: 2009Q2

REPORT INFORMATION
  Report Type: 
  Country: None (occurrence: None)
  Receive Date: 20090612
  Receipt Date: 20090513
  Transmission Date: 20091009
  Serious: No
  Sender: FDA-Public Use
  Company Number: US-ABBOTT-09P-163-0573036-00

PATIENT
  Sex: Male
  Weight: 95.34 kg

DRUGS (2)
  1. HUMIRA [Suspect]
     Indication: PSORIASIS
     Route: 058
     Dates: start: 20090403
  2. HUMIRA [Suspect]
     Indication: PSORIATIC ARTHROPATHY

REACTIONS (5)
  - BRONCHITIS [None]
  - PYREXIA [None]
  - SINUSITIS [None]
  - WEIGHT DECREASED [None]
  - WEIGHT INCREASED [None]
